FAERS Safety Report 10957640 (Version 1)
Quarter: 2015Q1

REPORT INFORMATION
  Report Type: Spontaneous
  Country: FR (occurrence: FR)
  Receive Date: 20150326
  Receipt Date: 20150326
  Transmission Date: 20150721
  Serious: Yes (Hospitalization)
  Sender: FDA-Public Use
  Company Number: FR-SA-2015SA036625

PATIENT
  Age: 81 Year
  Sex: Male

DRUGS (10)
  1. RIFATER [Suspect]
     Active Substance: ISONIAZID\PYRAZINAMIDE\RIFAMPIN
     Dosage: 1G, 3 DAYS
     Route: 048
     Dates: start: 20140813, end: 20140828
  2. CEFOTAXIME [Concomitant]
     Active Substance: CEFOTAXIME\CEFOTAXIME SODIUM
     Indication: LUNG INFECTION
     Dates: start: 20140806, end: 20140808
  3. AMOXICILLIN/CLAVULANIC ACID [Suspect]
     Active Substance: AMOXICILLIN\CLAVULANIC ACID
     Dosage: 1 G IN 3 DAYS
     Route: 048
     Dates: start: 20140808, end: 20140815
  4. BECILAN [Concomitant]
     Active Substance: PYRIDOXINE
     Dosage: STRENGTH: 250 MG
  5. PROTEINS NOS [Concomitant]
  6. ETHAMBUTOL [Concomitant]
     Active Substance: ETHAMBUTOL HYDROCHLORIDE
     Dates: start: 20140813
  7. PRINCI-B [Concomitant]
     Dates: start: 20140813
  8. LOVENOX [Concomitant]
     Active Substance: ENOXAPARIN SODIUM
     Dosage: STRENGHT: 0.4 ML
  9. ROVAMYCINE [Concomitant]
     Active Substance: SPIRAMYCIN
     Indication: LUNG INFECTION
     Dates: start: 20140806, end: 20140808
  10. MECIR [Concomitant]
     Active Substance: TAMSULOSIN HYDROCHLORIDE

REACTIONS (4)
  - Mucosal inflammation [Recovered/Resolved]
  - Toxic skin eruption [None]
  - Oesophagitis [Recovered/Resolved]
  - Urticaria [Recovered/Resolved]

NARRATIVE: CASE EVENT DATE: 20140817
